FAERS Safety Report 4336574-9 (Version None)
Quarter: 2004Q2

REPORT INFORMATION
  Report Type: 
  Country: None (occurrence: None)
  Receive Date: 20040409
  Receipt Date: 20040409
  Transmission Date: 20050107
  Serious: Yes (Hospitalization)
  Sender: FDA-Public Use
  Company Number: None

PATIENT
  Sex: Female
  Weight: 86.4 kg

DRUGS (9)
  1. TAXOL [Suspect]
     Indication: OVARIAN CANCER
     Dosage: 175 MG/M2 EVERY 3 WE  INTRAVENOUS
     Route: 017
     Dates: start: 20040121, end: 20040407
  2. CARBOPLATIN [Suspect]
     Indication: OVARIAN CANCER
     Dosage: AUC 6 EVERY 3 WE  INTRAVENOUS
     Route: 017
     Dates: start: 20040121, end: 20040407
  3. PROCARDIA [Concomitant]
  4. SINGULAIR [Concomitant]
  5. PULMICORT [Concomitant]
  6. HYDROCHLOROTHIAZIDE [Concomitant]
  7. FLONASE [Concomitant]
  8. ANZEMENT [Concomitant]
  9. DECADRON [Concomitant]

REACTIONS (3)
  - BONE MARROW DEPRESSION [None]
  - DEHYDRATION [None]
  - PNEUMONIA [None]
